FAERS Safety Report 23145003 (Version 1)
Quarter: 2023Q4

REPORT INFORMATION
  Report Type: Report from Study
  Country: CA (occurrence: CA)
  Receive Date: 20231103
  Receipt Date: 20231103
  Transmission Date: 20240109
  Serious: Yes (Other)
  Sender: FDA-Public Use
  Company Number: CA-MYLANLABS-2023M1116900

PATIENT
  Sex: Female
  Weight: 57 kg

DRUGS (2)
  1. OGIVRI [Suspect]
     Active Substance: TRASTUZUMAB-DKST
     Indication: Human epidermal growth factor receptor negative
     Dosage: 342 MILLIGRAM, Q3W
     Route: 042
     Dates: start: 20230307, end: 20230929
  2. OGIVRI [Suspect]
     Active Substance: TRASTUZUMAB-DKST
     Indication: Uterine cancer

REACTIONS (1)
  - Disease progression [Unknown]
